FAERS Safety Report 4349101-7 (Version None)
Quarter: 2004Q2

REPORT INFORMATION
  Report Type: 
  Country: None (occurrence: None)
  Receive Date: 20040427
  Receipt Date: 20040427
  Transmission Date: 20050107
  Serious: Yes (Life-Threatening)
  Sender: FDA-Public Use
  Company Number: None

PATIENT
  Sex: Male

DRUGS (1)
  1. TOBRAMYCIN [Suspect]
     Indication: CHRONIC OBSTRUCTIVE AIRWAYS DISEASE
     Dosage: 300 MG TID RESPIRATORY
     Route: 055
     Dates: start: 20040124, end: 20040124

REACTIONS (2)
  - FACE OEDEMA [None]
  - RESPIRATORY DEPRESSION [None]
